FAERS Safety Report 14909704 (Version 2)
Quarter: 2018Q2

REPORT INFORMATION
  Report Type: Spontaneous
  Country: US (occurrence: US)
  Receive Date: 20180517
  Receipt Date: 20180608
  Transmission Date: 20180711
  Serious: Yes (Hospitalization, Other)
  Sender: FDA-Public Use
  Company Number: US-GLAXOSMITHKLINE-US2018087767

PATIENT
  Age: 71 Year
  Sex: Female

DRUGS (2)
  1. COREG CR [Suspect]
     Active Substance: CARVEDILOL PHOSPHATE
     Indication: HEART VALVE INCOMPETENCE
     Dosage: 40 MG, 1D
     Route: 048
     Dates: start: 2008
  2. REMICADE [Concomitant]
     Active Substance: INFLIXIMAB

REACTIONS (3)
  - Renal stone removal [Unknown]
  - Product use in unapproved indication [Unknown]
  - Nephrolithiasis [Recovered/Resolved]

NARRATIVE: CASE EVENT DATE: 2014
